FAERS Safety Report 9251868 (Version 1)
Quarter: 2013Q1

REPORT INFORMATION
  Report Type: Spontaneous
  Country: US (occurrence: None)
  Receive Date: 20130305
  Receipt Date: 20130305
  Transmission Date: 20140127
  Serious: Yes (Other)
  Sender: FDA-Public Use
  Company Number: 163-21880-12081973 (0)

PATIENT
  Age: 94 Year
  Sex: Male
  Weight: 67.13 kg

DRUGS (11)
  1. REVLIMID [Suspect]
     Indication: PLASMA CELL MYELOMA
     Dosage: 21 IN 21 D
     Route: 048
     Dates: start: 20120710
  2. PROCRIT [Concomitant]
  3. CALCIUM(CALCIUM)(UNKNOWN) [Concomitant]
  4. CARDURA(DOXAZOSIN MESILATE)(UNKNOWN) [Concomitant]
  5. DEXAMETHASONE(DEXAMETHASONE)(UNKNOWN) [Concomitant]
  6. MAGNESIUM(MAGNESIUM)(UNKNOWN) [Concomitant]
  7. OSTEO BI-FLEX(OSTEO BI-FLEX)(UNKNOWN) [Concomitant]
  8. PROBIOTIC(BIFIDOBACTERIUM LACTIS)(CAPSULES) [Concomitant]
  9. SERTRALINE(SERTRALINE)(UNKNOWN) [Concomitant]
  10. ZITHROMAX(AZITHROMYCIN)(UNKNOWN) [Concomitant]
  11. ZOMETA(ZOLEDRONIC ACID)(UNKNOWN) [Concomitant]

REACTIONS (2)
  - Lethargy [None]
  - Decreased appetite [None]
